FAERS Safety Report 6648967-5 (Version None)
Quarter: 2010Q1

REPORT INFORMATION
  Report Type: 
  Country: None (occurrence: None)
  Receive Date: 20100324
  Receipt Date: 20100317
  Transmission Date: 20100710
  Serious: Yes (Hospitalization)
  Sender: FDA-Public Use
  Company Number: JP-MERCK-1003USA02991

PATIENT
  Age: 58 Year
  Sex: Female

DRUGS (7)
  1. JANUVIA [Suspect]
     Route: 048
     Dates: start: 20100218, end: 20100311
  2. JANUVIA [Suspect]
     Route: 048
     Dates: start: 20100317
  3. AMARYL [Suspect]
     Route: 048
     Dates: start: 20100218, end: 20100311
  4. AMARYL [Suspect]
     Route: 048
     Dates: start: 20100317
  5. CANDESARTAN CILEXETIL [Concomitant]
     Route: 048
  6. AMLODIPINE [Concomitant]
     Route: 048
  7. LIPOKOBAN [Concomitant]
     Route: 048

REACTIONS (1)
  - URINARY TRACT INFECTION [None]
